FAERS Safety Report 18798513 (Version 11)
Quarter: 2022Q4

REPORT INFORMATION
  Report Type: Spontaneous
  Country: US (occurrence: US)
  Receive Date: 20210128
  Receipt Date: 20221205
  Transmission Date: 20230112
  Serious: Yes (Other)
  Sender: FDA-Public Use
  Company Number: US-PFIZER INC-2021028247

PATIENT
  Age: 64 Year
  Sex: Female
  Weight: 89.81 kg

DRUGS (7)
  1. PREMARIN [Suspect]
     Active Substance: ESTROGENS, CONJUGATED
     Indication: Bladder operation
     Dosage: 0.5 G, 2X/WEEK
     Route: 067
     Dates: start: 20210426
  2. PREMARIN [Suspect]
     Active Substance: ESTROGENS, CONJUGATED
     Indication: Atrophic vulvovaginitis
  3. PREMARIN [Suspect]
     Active Substance: ESTROGENS, CONJUGATED
     Indication: Vulvovaginal pain
  4. MONISTAT [Concomitant]
     Active Substance: MICONAZOLE NITRATE
     Indication: Diabetes mellitus
     Dosage: 0.32 OZ, (9 G) FOR 7 DAYS
  5. MONISTAT [Concomitant]
     Active Substance: MICONAZOLE NITRATE
     Indication: Glucose urine present
  6. MONISTAT [Concomitant]
     Active Substance: MICONAZOLE NITRATE
     Indication: Burning sensation
  7. MONISTAT [Concomitant]
     Active Substance: MICONAZOLE NITRATE
     Indication: Pain

REACTIONS (2)
  - Glaucoma [Not Recovered/Not Resolved]
  - Product prescribing error [Unknown]
